FAERS Safety Report 13076747 (Version 1)
Quarter: 2016Q4

REPORT INFORMATION
  Report Type: Spontaneous
  Country: US (occurrence: US)
  Receive Date: 20161230
  Receipt Date: 20161230
  Transmission Date: 20170207
  Serious: Yes (Disabling)
  Sender: FDA-Public Use
  Company Number: None

PATIENT
  Age: 49 Year
  Sex: Female
  Weight: 49.95 kg

DRUGS (3)
  1. HARVONI [Suspect]
     Active Substance: LEDIPASVIR\SOFOSBUVIR
     Indication: HEPATITIS C
     Dosage: ?          QUANTITY:90 TABLET(S);?
     Route: 048
     Dates: start: 20160515, end: 20160708
  2. NEURONTIN [Concomitant]
     Active Substance: GABAPENTIN
  3. BACTERIUM DS [Concomitant]

REACTIONS (7)
  - Hepatic cirrhosis [None]
  - Pain in extremity [None]
  - Crying [None]
  - Scab [None]
  - Arthralgia [None]
  - Paraesthesia [None]
  - Folliculitis [None]

NARRATIVE: CASE EVENT DATE: 20160522
